FAERS Safety Report 18404826 (Version 1)
Quarter: 2020Q4

REPORT INFORMATION
  Report Type: Spontaneous
  Country: GB (occurrence: GB)
  Receive Date: 20201020
  Receipt Date: 20201020
  Transmission Date: 20210114
  Serious: Yes (Hospitalization, Disabling, Other)
  Sender: FDA-Public Use
  Company Number: GB-TORRENT-00024251

PATIENT
  Age: 73 Year
  Sex: Female
  Weight: 55 kg

DRUGS (7)
  1. SIMVASTATIN. [Concomitant]
     Active Substance: SIMVASTATIN
     Indication: BLOOD CHOLESTEROL INCREASED
     Dosage: UNKNOWN
  2. AMLODIPINE [Suspect]
     Active Substance: AMLODIPINE BESYLATE
     Indication: HYPERTENSION
     Dates: start: 20191206, end: 20200216
  3. PROMETHAZINE [Suspect]
     Active Substance: PROMETHAZINE HYDROCHLORIDE
     Indication: PRODUCT USED FOR UNKNOWN INDICATION
     Dosage: UNKNOWN
  4. ADALAT [Concomitant]
     Active Substance: NIFEDIPINE
     Indication: BLOOD CHOLESTEROL INCREASED
     Dosage: UNKNOWN
     Dates: end: 201911
  5. STEMETIL [Suspect]
     Active Substance: PROCHLORPERAZINE
     Indication: DIZZINESS
     Dosage: UNKNOWN
     Dates: start: 201912, end: 20200217
  6. ATORVASTATIN [Suspect]
     Active Substance: ATORVASTATIN
     Indication: BLOOD CHOLESTEROL INCREASED
     Dosage: UNKNOWN
     Dates: start: 20191206, end: 20200210
  7. OLMESARTAN [Suspect]
     Active Substance: OLMESARTAN
     Indication: HYPERTENSION
     Dates: start: 2005

REACTIONS (15)
  - Dizziness [Unknown]
  - Lethargy [Unknown]
  - Visual impairment [Unknown]
  - Decreased interest [Unknown]
  - Decreased appetite [Unknown]
  - Obsessive thoughts [Unknown]
  - Choking [Unknown]
  - Delirium [Unknown]
  - Muscular weakness [Unknown]
  - Bradykinesia [Unknown]
  - Hostility [Unknown]
  - Confusional state [Unknown]
  - Joint stiffness [Unknown]
  - Parkinson^s disease [Unknown]
  - Delusion [Unknown]

NARRATIVE: CASE EVENT DATE: 201912
